FAERS Safety Report 4885501-4 (Version None)
Quarter: 2005Q4

REPORT INFORMATION
  Report Type: 
  Country: None (occurrence: None)
  Receive Date: 20051220
  Receipt Date: 20041119
  Transmission Date: 20060501
  Serious: Yes (Other)
  Sender: FDA-Public Use
  Company Number: HQWYE627522NOV04

PATIENT
  Age: 56 Year
  Sex: Female

DRUGS (4)
  1. EFFEXOR XR [Suspect]
     Indication: DEPRESSION
     Dosage: SEE IMAGE
     Dates: start: 20030101, end: 20030101
  2. EFFEXOR XR [Suspect]
     Indication: DEPRESSION
     Dosage: SEE IMAGE
     Dates: start: 20030701, end: 20030101
  3. EFFEXOR XR [Suspect]
     Indication: DEPRESSION
     Dosage: SEE IMAGE
     Dates: start: 20030101, end: 20040101
  4. EFFEXOR XR [Suspect]
     Indication: DEPRESSION
     Dosage: SEE IMAGE
     Dates: start: 20040101, end: 20040101

REACTIONS (38)
  - ABDOMINAL PAIN [None]
  - AMNESIA [None]
  - ANGER [None]
  - ANXIETY [None]
  - APATHY [None]
  - CHROMATOPSIA [None]
  - CONDITION AGGRAVATED [None]
  - CRYING [None]
  - DEMENTIA [None]
  - DEPRESSION [None]
  - DIARRHOEA [None]
  - DISTURBANCE IN ATTENTION [None]
  - DRUG INEFFECTIVE [None]
  - DRUG WITHDRAWAL SYNDROME [None]
  - EYE PAIN [None]
  - FATIGUE [None]
  - FEELING GUILTY [None]
  - FEELING OF DESPAIR [None]
  - FEELINGS OF WORTHLESSNESS [None]
  - HEART RATE INCREASED [None]
  - HYPOKINESIA [None]
  - INSOMNIA [None]
  - MEMORY IMPAIRMENT [None]
  - MENTAL IMPAIRMENT [None]
  - OBSESSIVE-COMPULSIVE DISORDER [None]
  - PANIC REACTION [None]
  - PARANOIA [None]
  - PHOTOPSIA [None]
  - SELF ESTEEM DECREASED [None]
  - SPEECH DISORDER [None]
  - STOMACH DISCOMFORT [None]
  - SUICIDAL IDEATION [None]
  - THINKING ABNORMAL [None]
  - TINNITUS [None]
  - UNEVALUABLE EVENT [None]
  - VITREOUS FLOATERS [None]
  - VOMITING [None]
  - WEIGHT INCREASED [None]
